FAERS Safety Report 9308251 (Version 2)
Quarter: 2013Q2

REPORT INFORMATION
  Report Type: Spontaneous
  Country: IN (occurrence: IN)
  Receive Date: 20130524
  Receipt Date: 20130612
  Transmission Date: 20140414
  Serious: Yes (Death, Other)
  Sender: FDA-Public Use
  Company Number: IN-PFIZER INC-2013156115

PATIENT
  Age: 46 Year
  Sex: Male

DRUGS (5)
  1. SULFAMETHOXAZOLE/TRIMETHOPRIM [Suspect]
     Indication: HIV INFECTION
     Dosage: 960 MG, 1X/DAY
     Route: 065
  2. ZIDOVUDINE [Suspect]
     Indication: HIV INFECTION
     Dosage: 300 MG, 1X/DAY
     Route: 065
  3. NEVIRAPINE [Suspect]
     Indication: HIV INFECTION
     Dosage: 200MG, DAILY
     Route: 065
  4. STAVUDINE [Suspect]
     Dosage: UNK
     Route: 065
  5. LAMIVUDINE [Suspect]
     Indication: HIV INFECTION
     Dosage: 150 MG, 2X/DAY
     Route: 065

REACTIONS (18)
  - Stevens-Johnson syndrome [Fatal]
  - Hepatotoxicity [Unknown]
  - Anaemia [Unknown]
  - Pyrexia [Unknown]
  - Vomiting [Unknown]
  - Skin lesion [Unknown]
  - Mouth ulceration [Unknown]
  - Hepatic enzyme increased [Unknown]
  - Erythema [Unknown]
  - Skin plaque [Unknown]
  - Papule [Unknown]
  - Genital lesion [Unknown]
  - Mucosal erosion [Unknown]
  - White blood cell count decreased [None]
  - Platelet count decreased [None]
  - Aspartate aminotransferase increased [None]
  - Alanine aminotransferase increased [None]
  - Blood bilirubin increased [None]
